FAERS Safety Report 9015799 (Version 1)
Quarter: 2013Q1

REPORT INFORMATION
  Report Type: Spontaneous
  Country: US (occurrence: None)
  Receive Date: 20130102
  Receipt Date: 20130102
  Transmission Date: 20140127
  Serious: Yes (Disabling, Other)
  Sender: FDA-Public Use
  Company Number: JPI-P-026977

PATIENT
  Age: 60 Year
  Sex: Female
  Weight: 111.13 kg

DRUGS (16)
  1. XYREM [Suspect]
     Indication: SLEEP APNOEA SYNDROME
     Dosage: 7.5 GM (3.75 GM, 2 IN 1 D)
     Route: 048
     Dates: start: 20100311
  2. XYREM [Suspect]
     Indication: NARCOLEPSY
     Dosage: 7.5 GM (3.75 GM, 2 IN 1 D)
     Route: 048
     Dates: start: 20100311
  3. ASPIRIN [Concomitant]
  4. SITAGLIPTIN PHOSPHATE [Concomitant]
  5. GLYBURIDE / METFORMIN [Concomitant]
  6. LISINOPRIL [Suspect]
  7. PRAVASTATIN [Concomitant]
  8. TRAMADOL [Concomitant]
  9. ARMODAFINIL [Concomitant]
  10. TRIAMTERENE / HCTZ [Concomitant]
  11. CARISOPRODOL [Concomitant]
  12. CENTRUM MULTIVITAMIN [Concomitant]
  13. CALCIUM WITH VITAMIN D [Concomitant]
  14. OMEGA 3 [Concomitant]
  15. VITAMIN D6 [Concomitant]
  16. LORATADINE W/ PSEUDOEPHEDRINE [Concomitant]

REACTIONS (9)
  - Mental disorder [None]
  - Fall [None]
  - Ligament sprain [None]
  - Joint dislocation [None]
  - Rotator cuff syndrome [None]
  - Muscular weakness [None]
  - Insomnia [None]
  - Pain in extremity [None]
  - Contusion [None]
